FAERS Safety Report 10208154 (Version 1)
Quarter: 2014Q2

REPORT INFORMATION
  Report Type: Spontaneous
  Country: TR (occurrence: TR)
  Receive Date: 20140530
  Receipt Date: 20140530
  Transmission Date: 20141212
  Serious: Yes (Other)
  Sender: FDA-Public Use
  Company Number: TR-ACTAVIS-2014-10810

PATIENT
  Age: 48 Year
  Sex: Male

DRUGS (1)
  1. PROPYLTHIOURACIL (AELLC) [Suspect]
     Indication: HYPERTHYROIDISM
     Dosage: 400 MG, DAILY
     Route: 065

REACTIONS (4)
  - IgA nephropathy [Unknown]
  - Glomerulonephritis rapidly progressive [Unknown]
  - Antineutrophil cytoplasmic antibody positive [Unknown]
  - Overlap syndrome [Unknown]
